FAERS Safety Report 6912124-5 (Version None)
Quarter: 2010Q3

REPORT INFORMATION
  Report Type: 
  Country: None (occurrence: None)
  Receive Date: 20100806
  Receipt Date: 20071217
  Transmission Date: 20110219
  Serious: No
  Sender: FDA-Public Use
  Company Number: US-PFIZER INC-2007106729

PATIENT
  Sex: Female
  Weight: 47.727 kg

DRUGS (2)
  1. DETROL LA [Suspect]
     Indication: URINARY TRACT DISORDER
     Dates: start: 20071204, end: 20071217
  2. ANALGESICS [Concomitant]

REACTIONS (4)
  - COUGH [None]
  - RETCHING [None]
  - VOMITING [None]
  - WEIGHT DECREASED [None]
